FAERS Safety Report 10686268 (Version 2)
Quarter: 2014Q4

REPORT INFORMATION
  Report Type: Report from Study
  Country: ES (occurrence: ES)
  Receive Date: 20141231
  Receipt Date: 20141231
  Transmission Date: 20150529
  Serious: Yes (Hospitalization)
  Sender: FDA-Public Use
  Company Number: ES-ASTRAZENECA-2014SE46840

PATIENT
  Age: 25647 Day
  Sex: Female
  Weight: 55 kg

DRUGS (8)
  1. FENTANILO [Concomitant]
     Active Substance: FENTANYL
     Indication: PAIN
     Dosage: 1 MG/72 HOURS
     Route: 061
     Dates: start: 20140424
  2. AZD2281 [Suspect]
     Active Substance: OLAPARIB
     Indication: EGFR GENE MUTATION
     Route: 048
     Dates: start: 20140328
  3. GEFITINIB [Suspect]
     Active Substance: GEFITINIB
     Indication: EGFR GENE MUTATION
     Route: 048
     Dates: start: 20140328, end: 20140515
  4. LANSOPRAZOL [Concomitant]
     Active Substance: LANSOPRAZOLE
     Indication: PROPHYLAXIS AGAINST GASTROINTESTINAL ULCER
     Route: 048
  5. ATORVASTATINA [Concomitant]
     Active Substance: ATORVASTATIN
     Indication: DYSLIPIDAEMIA
     Route: 048
  6. BETAHISTINA [Concomitant]
     Indication: VERTIGO
  7. AZD2281 [Suspect]
     Active Substance: OLAPARIB
     Indication: NON-SMALL CELL LUNG CANCER
     Route: 048
     Dates: start: 20140328
  8. GEFITINIB [Suspect]
     Active Substance: GEFITINIB
     Indication: NON-SMALL CELL LUNG CANCER
     Route: 048
     Dates: start: 20140328, end: 20140515

REACTIONS (2)
  - Pericardial effusion [Recovered/Resolved with Sequelae]
  - Pulmonary hypertension [Recovered/Resolved with Sequelae]

NARRATIVE: CASE EVENT DATE: 20140515
